FAERS Safety Report 6086997-5 (Version None)
Quarter: 2009Q1

REPORT INFORMATION
  Report Type: 
  Country: None (occurrence: None)
  Receive Date: 20090223
  Receipt Date: 20090218
  Transmission Date: 20090719
  Serious: Yes (Life-Threatening)
  Sender: FDA-Public Use
  Company Number: US-WYE-H08259509

PATIENT
  Sex: Female

DRUGS (3)
  1. PRISTIQ [Suspect]
     Indication: DEPRESSION
     Dosage: 25 MG DAILY, SPLIT A 50 MG TABLET
     Route: 048
     Dates: start: 20090108, end: 20090113
  2. PRISTIQ [Suspect]
     Route: 048
     Dates: start: 20090114, end: 20090101
  3. PRISTIQ [Suspect]
     Dosage: TAKING 3/4 OF A  50 MG PILL
     Route: 048
     Dates: start: 20090101, end: 20090217

REACTIONS (7)
  - ELECTROCARDIOGRAM ABNORMAL [None]
  - FEELING JITTERY [None]
  - HOT FLUSH [None]
  - HYPERTENSION [None]
  - INTENTIONAL DRUG MISUSE [None]
  - NERVOUSNESS [None]
  - RASH [None]
